FAERS Safety Report 24389274 (Version 1)
Quarter: 2024Q4

REPORT INFORMATION
  Report Type: Spontaneous
  Country: US (occurrence: US)
  Receive Date: 20241003
  Receipt Date: 20241003
  Transmission Date: 20250115
  Serious: Yes (Hospitalization)
  Sender: ACADIA PHARMACEUTICALS
  Company Number: US-ACADIA PHARMACEUTICALS INC.-ACA-2024-PIM-005982

PATIENT
  Age: 90 Year
  Sex: Male

DRUGS (1)
  1. NUPLAZID [Suspect]
     Active Substance: PIMAVANSERIN TARTRATE
     Indication: Dementia with Lewy bodies
     Dosage: 34 MILLIGRAM, QD
     Route: 048
     Dates: start: 202111

REACTIONS (8)
  - Road traffic accident [Unknown]
  - Psychotic disorder [Unknown]
  - Staring [Unknown]
  - Catheter site haemorrhage [Unknown]
  - Heart rate increased [Unknown]
  - Delusion [Unknown]
  - Aggression [Unknown]
  - Off label use [Unknown]

NARRATIVE: CASE EVENT DATE: 20240915
